FAERS Safety Report 12851068 (Version 2)
Quarter: 2016Q4

REPORT INFORMATION
  Report Type: Spontaneous
  Country: US (occurrence: US)
  Receive Date: 20161017
  Receipt Date: 20161121
  Transmission Date: 20170207
  Serious: No
  Sender: FDA-Public Use
  Company Number: US-JNJFOC-20160923014

PATIENT
  Age: 77 Year
  Sex: Male

DRUGS (1)
  1. IMBRUVICA [Suspect]
     Active Substance: IBRUTINIB
     Indication: WALDENSTROM^S MACROGLOBULINAEMIA
     Route: 065
     Dates: start: 201609

REACTIONS (5)
  - Musculoskeletal stiffness [Recovered/Resolved]
  - Epistaxis [Recovered/Resolved]
  - Neck pain [Recovered/Resolved]
  - Arthralgia [Recovering/Resolving]
  - Nasal congestion [Recovered/Resolved]

NARRATIVE: CASE EVENT DATE: 201609
